FAERS Safety Report 10960538 (Version 2)
Quarter: 2015Q3

REPORT INFORMATION
  Report Type: Report from Study
  Country: ID (occurrence: ID)
  Receive Date: 20150327
  Receipt Date: 20150706
  Transmission Date: 20151125
  Serious: Yes (Death, Hospitalization, Other)
  Sender: FDA-Public Use
  Company Number: ID-BAYER-2015-053226

PATIENT
  Age: 76 Year
  Sex: Male

DRUGS (1)
  1. NEXAVAR [Suspect]
     Active Substance: SORAFENIB
     Indication: HEPATOCELLULAR CARCINOMA
     Dosage: 400 MG DAILY
     Route: 048
     Dates: start: 201409, end: 20150124

REACTIONS (7)
  - Localised infection [None]
  - Ascites [Fatal]
  - Hepatocellular carcinoma [Fatal]
  - Spinal cord compression [None]
  - Mobility decreased [None]
  - Abasia [None]
  - Blood albumin decreased [Fatal]

NARRATIVE: CASE EVENT DATE: 201412
